FAERS Safety Report 12384576 (Version 1)
Quarter: 2016Q2

REPORT INFORMATION
  Report Type: Spontaneous
  Country: US (occurrence: None)
  Receive Date: 20160518
  Receipt Date: 20160518
  Transmission Date: 20160815
  Serious: Yes (Other)
  Sender: FDA-Public Use
  Company Number: None

PATIENT
  Age: 50 Year
  Sex: Female
  Weight: 68.04 kg

DRUGS (2)
  1. CLAIRITAN [Concomitant]
  2. IBUPROFEN 800 MG [Suspect]
     Active Substance: IBUPROFEN
     Indication: PAIN
     Route: 048
     Dates: start: 20160512, end: 20160516

REACTIONS (6)
  - Presyncope [None]
  - Dizziness [None]
  - Product tampering [None]
  - Poisoning [None]
  - Tremor [None]
  - Product substitution issue [None]

NARRATIVE: CASE EVENT DATE: 20160514
